FAERS Safety Report 5283540-5 (Version None)
Quarter: 2007Q1

REPORT INFORMATION
  Report Type: 
  Country: None (occurrence: None)
  Receive Date: 20061226
  Receipt Date: 20061018
  Transmission Date: 20070707
  Serious: No
  Sender: FDA-Public Use
  Company Number: 2006PV023454

PATIENT
  Age: 57 Year
  Sex: Female
  Weight: 74.8435 kg

DRUGS (5)
  1. SYMLIN [Suspect]
     Indication: DIABETES MELLITUS NON-INSULIN-DEPENDENT
     Dosage: SEE IMAGE
     Route: 058
     Dates: start: 20061011, end: 20061016
  2. SYMLIN [Suspect]
     Indication: DIABETES MELLITUS NON-INSULIN-DEPENDENT
     Dosage: SEE IMAGE
     Route: 058
     Dates: start: 20061017
  3. BYETTA [Suspect]
     Indication: DRUG USE FOR UNKNOWN INDICATION
     Dates: end: 20061011
  4. NOVOLOG [Concomitant]
  5. NOVOLIN N [Concomitant]

REACTIONS (3)
  - BLOOD GLUCOSE INCREASED [None]
  - FEELING ABNORMAL [None]
  - NAUSEA [None]
